FAERS Safety Report 6018342-5 (Version None)
Quarter: 2008Q4

REPORT INFORMATION
  Report Type: 
  Country: None (occurrence: None)
  Receive Date: 20081223
  Receipt Date: 20081211
  Transmission Date: 20090506
  Serious: Yes (Other)
  Sender: FDA-Public Use
  Company Number: PHHY2008JP24180

PATIENT
  Age: 12 Year
  Sex: Male

DRUGS (4)
  1. NEORAL [Suspect]
     Indication: NEPHRITIC SYNDROME
     Dosage: 60 MG/DAY
     Route: 048
  2. NEORAL [Suspect]
     Dosage: 25 MG/DAY
     Route: 048
     Dates: start: 20080519
  3. NEORAL [Suspect]
     Dosage: 50 MG/DAY
     Dates: start: 20080603
  4. NEORAL [Suspect]
     Dosage: 100 MG/DAY
     Dates: start: 20080613

REACTIONS (3)
  - BLOOD CREATINE PHOSPHOKINASE INCREASED [None]
  - FALL [None]
  - GAIT DISTURBANCE [None]
